FAERS Safety Report 13586835 (Version 1)
Quarter: 2017Q2

REPORT INFORMATION
  Report Type: Spontaneous
  Country: US (occurrence: US)
  Receive Date: 20170526
  Receipt Date: 20170526
  Transmission Date: 20170830
  Serious: No
  Sender: FDA-Public Use
  Company Number: US-ROCHE-723355

PATIENT
  Sex: Female

DRUGS (1)
  1. VALCYTE [Suspect]
     Active Substance: VALGANCICLOVIR HYDROCHLORIDE
     Indication: FATIGUE
     Route: 065

REACTIONS (3)
  - Arthralgia [Unknown]
  - Myalgia [Unknown]
  - Fatigue [Not Recovered/Not Resolved]
